FAERS Safety Report 5372683-3 (Version None)
Quarter: 2007Q2

REPORT INFORMATION
  Report Type: 
  Country: None (occurrence: None)
  Receive Date: 20070626
  Receipt Date: 20070612
  Transmission Date: 20071010
  Serious: Yes (Hospitalization)
  Sender: FDA-Public Use
  Company Number: MEDI-0005833

PATIENT
  Sex: Male
  Weight: 6.8 kg

DRUGS (12)
  1. SYNAGIS [Suspect]
     Indication: BRONCHOPULMONARY DYSPLASIA
     Dosage: SEE IMAGE
     Route: 030
     Dates: start: 20060926, end: 20070226
  2. SYNAGIS [Suspect]
     Indication: PREMATURE BABY
     Dosage: SEE IMAGE
     Route: 030
     Dates: start: 20060926, end: 20070226
  3. SYNAGIS [Suspect]
     Indication: BRONCHOPULMONARY DYSPLASIA
     Dosage: SEE IMAGE
     Route: 030
     Dates: start: 20060926
  4. SYNAGIS [Suspect]
     Indication: PREMATURE BABY
     Dosage: SEE IMAGE
     Route: 030
     Dates: start: 20060926
  5. SYNAGIS [Suspect]
     Indication: BRONCHOPULMONARY DYSPLASIA
     Dosage: SEE IMAGE
     Route: 030
     Dates: start: 20061030
  6. SYNAGIS [Suspect]
     Indication: PREMATURE BABY
     Dosage: SEE IMAGE
     Route: 030
     Dates: start: 20061030
  7. SYNAGIS [Suspect]
     Indication: BRONCHOPULMONARY DYSPLASIA
     Dosage: SEE IMAGE
     Route: 030
     Dates: start: 20061127
  8. SYNAGIS [Suspect]
     Indication: PREMATURE BABY
     Dosage: SEE IMAGE
     Route: 030
     Dates: start: 20061127
  9. SYNAGIS [Suspect]
     Indication: BRONCHOPULMONARY DYSPLASIA
     Dosage: SEE IMAGE
     Route: 030
     Dates: start: 20061227
  10. SYNAGIS [Suspect]
     Indication: PREMATURE BABY
     Dosage: SEE IMAGE
     Route: 030
     Dates: start: 20061227
  11. SYNAGIS [Suspect]
     Indication: BRONCHOPULMONARY DYSPLASIA
     Dosage: SEE IMAGE
     Route: 030
     Dates: start: 20070129
  12. SYNAGIS [Suspect]
     Indication: PREMATURE BABY
     Dosage: SEE IMAGE
     Route: 030
     Dates: start: 20070129

REACTIONS (4)
  - CYANOSIS [None]
  - PYREXIA [None]
  - RESPIRATORY SYNCYTIAL VIRUS INFECTION [None]
  - TACHYPNOEA [None]
